FAERS Safety Report 23201193 (Version 1)
Quarter: 2023Q4

REPORT INFORMATION
  Report Type: Spontaneous
  Country: FR (occurrence: FR)
  Receive Date: 20231118
  Receipt Date: 20231118
  Transmission Date: 20240109
  Serious: Yes (Hospitalization)
  Sender: FDA-Public Use
  Company Number: None

PATIENT
  Age: 78 Year
  Sex: Male
  Weight: 80 kg

DRUGS (2)
  1. OFLOXACIN [Suspect]
     Active Substance: OFLOXACIN
     Indication: Mediastinitis
     Route: 065
     Dates: start: 20230902, end: 20231010
  2. LINEZOLID [Suspect]
     Active Substance: LINEZOLID
     Indication: Mediastinitis
     Route: 065
     Dates: start: 20230902, end: 20231010

REACTIONS (1)
  - Bicytopenia [Recovered/Resolved]

NARRATIVE: CASE EVENT DATE: 20230929
